FAERS Safety Report 9699262 (Version 1)
Quarter: 2013Q4

REPORT INFORMATION
  Report Type: Spontaneous
  Country: US (occurrence: US)
  Receive Date: 20131120
  Receipt Date: 20131120
  Transmission Date: 20140711
  Serious: Yes (Other)
  Sender: FDA-Public Use
  Company Number: US-GILEAD-2008-0015211

PATIENT
  Sex: Female

DRUGS (10)
  1. LETAIRIS [Suspect]
     Indication: PULMONARY ARTERIAL HYPERTENSION
     Route: 048
     Dates: start: 20071121, end: 20080105
  2. ASA [Concomitant]
     Route: 048
  3. K-DUR [Concomitant]
     Route: 048
  4. LODINE XL [Concomitant]
     Route: 048
  5. LOTREL [Concomitant]
     Route: 048
  6. LASIX [Concomitant]
     Route: 048
  7. ISOSORBIDE MONONITRATE [Concomitant]
     Route: 048
  8. PROTONIX [Concomitant]
     Route: 048
  9. ZOLOFT [Concomitant]
     Route: 048
  10. LIPITOR [Concomitant]
     Route: 048

REACTIONS (1)
  - Dyspnoea [Recovered/Resolved]
